FAERS Safety Report 8613460-7 (Version None)
Quarter: 2012Q3

REPORT INFORMATION
  Report Type: 
  Country: None (occurrence: None)
  Receive Date: 20120823
  Receipt Date: 20120807
  Transmission Date: 20120928
  Serious: Yes (Disabling)
  Sender: FDA-Public Use
  Company Number: FR-009507513-1208FRA005463

PATIENT

DRUGS (5)
  1. ZOCOR [Suspect]
     Indication: ATHEROSCLEROSIS PROPHYLAXIS
     Dosage: 20 MG, QD
     Route: 048
     Dates: start: 20050101, end: 20120710
  2. LANTUS [Concomitant]
     Indication: TYPE 1 DIABETES MELLITUS
     Route: 058
  3. TRAMADOL HCL [Concomitant]
     Dosage: 200 MG, QD
     Route: 048
  4. NOVORAPID [Concomitant]
     Indication: TYPE 1 DIABETES MELLITUS
     Route: 058
  5. NOVOLOG MIX 70/30 [Concomitant]
     Indication: TYPE 1 DIABETES MELLITUS
     Route: 058

REACTIONS (3)
  - NEUROPATHY PERIPHERAL [None]
  - ROTATOR CUFF SYNDROME [None]
  - PERIARTHRITIS [None]
